FAERS Safety Report 16365953 (Version 1)
Quarter: 2019Q2

REPORT INFORMATION
  Report Type: Spontaneous
  Country: US (occurrence: US)
  Receive Date: 20190529
  Receipt Date: 20190529
  Transmission Date: 20190711
  Serious: No
  Sender: FDA-Public Use
  Company Number: US-VERTEX PHARMACEUTICALS-2019-004895

PATIENT
  Age: 38 Year
  Sex: Male

DRUGS (8)
  1. CREON [Concomitant]
     Active Substance: PANCRELIPASE AMYLASE\PANCRELIPASE LIPASE\PANCRELIPASE PROTEASE
  2. NEXIUM [Concomitant]
     Active Substance: ESOMEPRAZOLE MAGNESIUM
  3. LEVOFLOXACIN. [Concomitant]
     Active Substance: LEVOFLOXACIN
  4. CAYSTON [Concomitant]
     Active Substance: AZTREONAM
  5. PULMOZYME [Concomitant]
     Active Substance: DORNASE ALFA
  6. SYMDEKO [Suspect]
     Active Substance: IVACAFTOR\TEZACAFTOR
     Indication: CYSTIC FIBROSIS
     Dosage: UNK, BID
     Route: 048
     Dates: start: 201808
  7. TOBI [Concomitant]
     Active Substance: TOBRAMYCIN
  8. CEFADROXIL. [Concomitant]
     Active Substance: CEFADROXIL

REACTIONS (1)
  - Infection [Unknown]

NARRATIVE: CASE EVENT DATE: 201904
